FAERS Safety Report 16388288 (Version 1)
Quarter: 2019Q2

REPORT INFORMATION
  Report Type: Spontaneous
  Country: US (occurrence: US)
  Receive Date: 20190601
  Receipt Date: 20190601
  Transmission Date: 20190711
  Serious: No
  Sender: FDA-Public Use
  Company Number: None

PATIENT
  Age: 50 Year
  Sex: Female
  Weight: 67.5 kg

DRUGS (7)
  1. LEVOTHYROXINE. [Concomitant]
     Active Substance: LEVOTHYROXINE
  2. LIOTHYRONINE [Concomitant]
     Active Substance: LIOTHYRONINE
  3. PROGESTERONE. [Concomitant]
     Active Substance: PROGESTERONE
  4. TRAMADOL. [Concomitant]
     Active Substance: TRAMADOL
  5. CLONAZEPAM. [Concomitant]
     Active Substance: CLONAZEPAM
  6. TOPAMAX [Suspect]
     Active Substance: TOPIRAMATE
     Indication: FIBROMYALGIA
     Route: 048
  7. TOPAMAX [Suspect]
     Active Substance: TOPIRAMATE
     Indication: NEUROPATHY PERIPHERAL
     Route: 048

REACTIONS (3)
  - Migraine [None]
  - Pigment dispersion syndrome [None]
  - Angle closure glaucoma [None]

NARRATIVE: CASE EVENT DATE: 20150801
